FAERS Safety Report 9126586 (Version 1)
Quarter: 2013Q1

REPORT INFORMATION
  Report Type: Spontaneous
  Country: FR (occurrence: FR)
  Receive Date: 20130117
  Receipt Date: 20130117
  Transmission Date: 20140127
  Serious: Yes (Other)
  Sender: FDA-Public Use
  Company Number: FR-PFIZER INC-2013011945

PATIENT
  Age: 57 Year
  Sex: Male

DRUGS (2)
  1. ARACYTINE [Suspect]
     Indication: ACUTE MYELOID LEUKAEMIA
     Dosage: 2 G, 1X/DAY
     Route: 042
     Dates: start: 20121104, end: 20121107
  2. EVOLTRA [Suspect]
     Indication: ACUTE MYELOID LEUKAEMIA
     Dosage: 60 MG, 1X/DAY
     Route: 042
     Dates: start: 20121104, end: 20121108

REACTIONS (4)
  - Dermatitis exfoliative [Recovering/Resolving]
  - Dermatitis bullous [Recovering/Resolving]
  - Pyrexia [Recovering/Resolving]
  - Oedema [Recovering/Resolving]
